FAERS Safety Report 9388198 (Version 1)
Quarter: 2013Q3

REPORT INFORMATION
  Report Type: Spontaneous
  Country: US (occurrence: None)
  Receive Date: 20130703
  Receipt Date: 20130703
  Transmission Date: 20140515
  Serious: Yes (Other)
  Sender: FDA-Public Use
  Company Number: 13-03120

PATIENT
  Age: 63 Year
  Sex: Male

DRUGS (2)
  1. ASTHMANEFRIN INHALATION SOLUTION, 2.25% [Suspect]
     Indication: ASTHMA
     Dosage: 1 INHALATION QID 054 ?UNIDENTIFIED
     Route: 055
  2. NEPHRON PHARMACEUTICALS CORPORATION [Suspect]

REACTIONS (2)
  - Haemoptysis [None]
  - Throat irritation [None]
